FAERS Safety Report 5364064-3 (Version None)
Quarter: 2007Q2

REPORT INFORMATION
  Report Type: 
  Country: None (occurrence: None)
  Receive Date: 20070620
  Receipt Date: 20070612
  Transmission Date: 20071010
  Serious: Yes (Other)
  Sender: FDA-Public Use
  Company Number: JP-ASTRAZENECA-2007SE03054

PATIENT
  Age: 26145 Day
  Sex: Male

DRUGS (7)
  1. BLOPRESS [Suspect]
     Indication: HYPERTENSION
     Route: 048
     Dates: start: 20060123
  2. AMLODIN [Concomitant]
     Route: 048
  3. MAINTATE [Concomitant]
     Route: 048
  4. EBRANTIL [Concomitant]
     Route: 048
  5. DEPAS [Concomitant]
     Route: 048
  6. PAXIL [Concomitant]
     Route: 048
  7. NATRIX [Concomitant]
     Route: 048

REACTIONS (1)
  - INTERSTITIAL LUNG DISEASE [None]
